FAERS Safety Report 12199098 (Version 1)
Quarter: 2016Q1

REPORT INFORMATION
  Report Type: Spontaneous
  Country: RO (occurrence: RO)
  Receive Date: 20160322
  Receipt Date: 20160322
  Transmission Date: 20160526
  Serious: Yes (Other)
  Sender: FDA-Public Use
  Company Number: RO-SUN PHARMACEUTICAL INDUSTRIES LTD-2016R1-113578

PATIENT
  Age: 47 Year
  Sex: Female

DRUGS (1)
  1. SULFASALAZINE. [Suspect]
     Active Substance: SULFASALAZINE
     Indication: PRODUCT USED FOR UNKNOWN INDICATION
     Dosage: 2 G, QD
     Route: 065

REACTIONS (5)
  - Thrombocytopenia [Unknown]
  - Klebsiella bacteraemia [Unknown]
  - Blood glucose increased [Unknown]
  - Amylase increased [Unknown]
  - Toxic epidermal necrolysis [Unknown]
